FAERS Safety Report 19881653 (Version 1)
Quarter: 2021Q3

REPORT INFORMATION
  Report Type: Spontaneous
  Country: FR (occurrence: FR)
  Receive Date: 20210925
  Receipt Date: 20210925
  Transmission Date: 20211014
  Serious: Yes (Hospitalization)
  Sender: FDA-Public Use
  Company Number: NVSC2021FR215048

PATIENT
  Age: 58 Year
  Sex: Female
  Weight: 67.5 kg

DRUGS (2)
  1. PARACETAMOL [Suspect]
     Active Substance: ACETAMINOPHEN
     Indication: INTENTIONAL OVERDOSE
     Dosage: 6.5 G
     Route: 048
     Dates: start: 20210602, end: 20210602
  2. TRAMADOL. [Suspect]
     Active Substance: TRAMADOL
     Indication: PRODUCT USED FOR UNKNOWN INDICATION
     Dosage: 250 ML
     Route: 048
     Dates: start: 20210602, end: 20210602

REACTIONS (3)
  - Vomiting [Recovered/Resolved]
  - Poisoning deliberate [Recovered/Resolved]
  - Coma [Recovered/Resolved]

NARRATIVE: CASE EVENT DATE: 20210602
